FAERS Safety Report 6345250-2 (Version None)
Quarter: 2009Q3

REPORT INFORMATION
  Report Type: 
  Country: None (occurrence: None)
  Receive Date: 20090909
  Receipt Date: 20090901
  Transmission Date: 20100115
  Serious: Yes (Hospitalization)
  Sender: FDA-Public Use
  Company Number: PHHY2009BR37173

PATIENT
  Sex: Female

DRUGS (1)
  1. EXELON [Suspect]
     Dosage: 4.5 MG, UNK
     Route: 048

REACTIONS (4)
  - BLOOD PRESSURE INCREASED [None]
  - GASTRIC DISORDER [None]
  - NAUSEA [None]
  - VOMITING [None]
